FAERS Safety Report 8811043 (Version 1)
Quarter: 2012Q4

REPORT INFORMATION
  Report Type: 
  Country: ES (occurrence: ES)
  Receive Date: 20120927
  Receipt Date: 20120927
  Transmission Date: 20130627
  Serious: Yes (Other)
  Sender: FDA-Public Use
  Company Number: ES-EISAI INC-E0800-00113-SPO-ES

PATIENT
  Age: 65 Year
  Sex: Male

DRUGS (4)
  1. SALAGEN [Suspect]
     Indication: SJOGREN^S SYNDROME
     Route: 048
     Dates: start: 201203, end: 20120603
  2. SALAGEN [Suspect]
     Route: 048
     Dates: start: 20120604, end: 20120621
  3. RESOCHIN [Concomitant]
     Indication: SJOGREN^S SYNDROME
     Dosage: 250 mg daily
  4. VISCOFRESH [Concomitant]
     Indication: SJOGREN^S SYNDROME
     Dosage: 2 drops daily

REACTIONS (3)
  - Hyperuricaemia [Recovered/Resolved]
  - Blood pressure increased [Recovered/Resolved]
  - Dizziness [Recovered/Resolved]
